FAERS Safety Report 13547062 (Version 1)
Quarter: 2017Q2

REPORT INFORMATION
  Report Type: Spontaneous
  Country: US (occurrence: US)
  Receive Date: 20170515
  Receipt Date: 20170515
  Transmission Date: 20170830
  Serious: No
  Sender: FDA-Public Use
  Company Number: US-GE HEALTHCARE LIFE SCIENCES-2017CSU000985

PATIENT
  Age: 8 Year
  Sex: Female

DRUGS (1)
  1. ADREVIEW [Suspect]
     Active Substance: IOBENGUANE I-123
     Indication: PARAGANGLION NEOPLASM
     Dosage: UNK, SINGLE
     Route: 065

REACTIONS (2)
  - Drug ineffective [Recovered/Resolved]
  - No adverse event [Recovered/Resolved]
